FAERS Safety Report 17801937 (Version 2)
Quarter: 2020Q3

REPORT INFORMATION
  Report Type: Report from Study
  Country: MX (occurrence: MX)
  Receive Date: 20200519
  Receipt Date: 20200526
  Transmission Date: 20201104
  Serious: Yes (Other)
  Sender: FDA-Public Use
  Company Number: NVSC2020MX107617

PATIENT
  Sex: Male

DRUGS (5)
  1. GALVUS MET [Suspect]
     Active Substance: METFORMIN HYDROCHLORIDE\VILDAGLIPTIN
     Indication: BLOOD PRESSURE ABNORMAL
     Dosage: 1 DF, QD (50/1000 MG), 4 TO 5 YEARS
     Route: 048
  2. EXFORGE HCT [Suspect]
     Active Substance: AMLODIPINE BESYLATE\HYDROCHLOROTHIAZIDE\VALSARTAN
     Dosage: 1 DF, (5/160/12.5 MG) BID
     Route: 048
  3. GALVUS [Suspect]
     Active Substance: VILDAGLIPTIN
     Indication: CARDIAC DISORDER
     Dosage: 1 DF, QD STARTED APPROXIMATELY 4 YEARS AGO, STOPPED APPROXIMATELY 1 YEAR AGO
     Route: 048
  4. EXFORGE HCT [Suspect]
     Active Substance: AMLODIPINE BESYLATE\HYDROCHLOROTHIAZIDE\VALSARTAN
     Indication: DIABETES MELLITUS
     Dosage: 1 DF, (5/160/12.5 MG) QD
     Route: 048
  5. GALVUS MET [Suspect]
     Active Substance: METFORMIN HYDROCHLORIDE\VILDAGLIPTIN
     Dosage: 1 DF, QMO (5/1000 MG) APPROXIMATELY 1 YEAR AGO
     Route: 065

REACTIONS (8)
  - Deafness [Unknown]
  - Malaise [Recovering/Resolving]
  - Product use in unapproved indication [Unknown]
  - Diabetes mellitus [Not Recovered/Not Resolved]
  - Hypoacusis [Not Recovered/Not Resolved]
  - Cardiac disorder [Not Recovered/Not Resolved]
  - Gait disturbance [Unknown]
  - Dizziness [Recovering/Resolving]
